FAERS Safety Report 20331023 (Version 2)
Quarter: 2022Q1

REPORT INFORMATION
  Report Type: Spontaneous
  Country: US (occurrence: US)
  Receive Date: 20220113
  Receipt Date: 20220228
  Transmission Date: 20220423
  Serious: No
  Sender: FDA-Public Use
  Company Number: US-PFIZER INC-202101806930

PATIENT
  Age: 16 Year
  Sex: Male

DRUGS (1)
  1. GENOTROPIN [Suspect]
     Active Substance: SOMATROPIN
     Indication: Growth hormone deficiency
     Dosage: 2.8 - UNSPECIFIED UNIT, 6 DAYS A WEEK

REACTIONS (3)
  - Injection site pain [Unknown]
  - Device deployment issue [Unknown]
  - Drug dose omission by device [Unknown]
